FAERS Safety Report 4808473-7 (Version None)
Quarter: 2005Q4

REPORT INFORMATION
  Report Type: 
  Country: None (occurrence: None)
  Receive Date: 20051025
  Receipt Date: 20051012
  Transmission Date: 20060501
  Serious: Yes (Hospitalization)
  Sender: FDA-Public Use
  Company Number: US-AMGEN-US154019

PATIENT
  Sex: Male
  Weight: 72.6 kg

DRUGS (5)
  1. NEULASTA [Suspect]
     Indication: CHEMOTHERAPY
     Route: 058
     Dates: start: 20051002, end: 20051002
  2. CARBOPLATIN [Concomitant]
     Route: 042
     Dates: start: 20050929
  3. ETOPOSIDE [Concomitant]
     Route: 042
     Dates: start: 20050929
  4. PROCRIT [Concomitant]
     Indication: ANAEMIA OF MALIGNANT DISEASE
     Route: 058
     Dates: start: 20051002
  5. RITUXAN [Concomitant]
     Dates: start: 20051001

REACTIONS (3)
  - DRUG INEFFECTIVE [None]
  - FEBRILE NEUTROPENIA [None]
  - THERAPY NON-RESPONDER [None]
